FAERS Safety Report 9836571 (Version 1)
Quarter: 2013Q4

REPORT INFORMATION
  Report Type: Spontaneous
  Country: US (occurrence: None)
  Receive Date: 20131121
  Receipt Date: 20131121
  Transmission Date: 20140711
  Serious: Yes (Other)
  Sender: FDA-Public Use
  Company Number: 1000048955

PATIENT
  Sex: Female

DRUGS (1)
  1. TUDORZA PRESSAIR (ACLIDINIUM BROMIDE) [Suspect]

REACTIONS (1)
  - Drug ineffective [None]
